FAERS Safety Report 9892455 (Version 1)
Quarter: 2014Q1

REPORT INFORMATION
  Report Type: Spontaneous
  Country: US (occurrence: US)
  Receive Date: 20140212
  Receipt Date: 20140212
  Transmission Date: 20141002
  Serious: Yes (Other)
  Sender: FDA-Public Use
  Company Number: US-ASTRAZENECA-2014SE08290

PATIENT
  Age: 58 Year
  Sex: Male
  Weight: 90.7 kg

DRUGS (17)
  1. NEXIUM [Suspect]
     Indication: GASTROOESOPHAGEAL REFLUX DISEASE
     Route: 048
     Dates: start: 2004, end: 201401
  2. OMEPRAZOLE [Suspect]
     Indication: GASTROOESOPHAGEAL REFLUX DISEASE
     Route: 048
     Dates: start: 201401
  3. LISINOPRIL [Suspect]
     Indication: BLOOD PRESSURE ABNORMAL
     Route: 048
     Dates: start: 2013
  4. METOPROLOL [Suspect]
     Indication: ARTERIAL OCCLUSIVE DISEASE
     Route: 048
     Dates: start: 201401
  5. PAXIL [Concomitant]
     Indication: ANXIETY
     Route: 048
     Dates: start: 2004
  6. CLONAZEPAM [Concomitant]
     Indication: PANIC ATTACK
     Route: 048
     Dates: start: 2004
  7. LIPITOR [Concomitant]
     Indication: BLOOD CHOLESTEROL ABNORMAL
     Route: 048
     Dates: start: 2004
  8. METFORMIN [Concomitant]
     Indication: TYPE 2 DIABETES MELLITUS
     Route: 048
     Dates: start: 2004
  9. NAPROXEN [Concomitant]
     Indication: ARTHRITIS
     Route: 048
     Dates: start: 201401
  10. TRICOR [Concomitant]
     Indication: BLOOD TRIGLYCERIDES INCREASED
     Route: 048
     Dates: start: 2006
  11. TRADJENTA [Concomitant]
     Indication: DIABETES MELLITUS
     Route: 048
     Dates: start: 2013
  12. FISH OIL [Concomitant]
     Indication: NUTRITIONAL SUPPLEMENTATION
     Route: 048
  13. TIMOLOL [Concomitant]
     Indication: RETINAL DETACHMENT
     Route: 061
  14. TRABATAN [Concomitant]
     Indication: RETINAL DETACHMENT
     Route: 061
  15. MULTIVITAMIN [Concomitant]
     Indication: VITAMIN SUPPLEMENTATION
     Route: 048
  16. ASA [Concomitant]
     Indication: SUPPLEMENTATION THERAPY
     Dosage: LOW DOSE, 1 TAB DAILY
     Route: 048
  17. FLAC SEED [Concomitant]
     Indication: SUPPLEMENTATION THERAPY
     Route: 048

REACTIONS (3)
  - Coronary artery occlusion [Unknown]
  - Chest pain [Unknown]
  - Drug ineffective [Unknown]
